FAERS Safety Report 5672293-4 (Version None)
Quarter: 2008Q1

REPORT INFORMATION
  Report Type: 
  Country: None (occurrence: None)
  Receive Date: 20080319
  Receipt Date: 20080311
  Transmission Date: 20080703
  Serious: Yes (Other)
  Sender: FDA-Public Use
  Company Number: PHBS2008BR02731

PATIENT
  Sex: Female

DRUGS (3)
  1. GLEEVEC [Suspect]
     Dosage: 600 MG/DAY
     Dates: start: 20070901
  2. ANTIBIOTICS [Suspect]
  3. CORTICOSTEROIDS [Concomitant]

REACTIONS (1)
  - HAEMOLYTIC ANAEMIA [None]
